FAERS Safety Report 9994835 (Version 1)
Quarter: 2014Q1

REPORT INFORMATION
  Report Type: Spontaneous
  Country: US (occurrence: US)
  Receive Date: 20140311
  Receipt Date: 20140311
  Transmission Date: 20141002
  Serious: Yes (Hospitalization)
  Sender: FDA-Public Use
  Company Number: US-BAYER-2014-035076

PATIENT
  Age: 49 Year
  Sex: Female
  Weight: 57.87 kg

DRUGS (2)
  1. YAZ [Suspect]
  2. DORYX [Concomitant]
     Dosage: 150 MG, UNK
     Route: 048
     Dates: start: 20100503

REACTIONS (2)
  - Ischaemic cerebral infarction [None]
  - Ischaemic stroke [None]
